FAERS Safety Report 9487122 (Version 1)
Quarter: 2013Q3

REPORT INFORMATION
  Report Type: Spontaneous
  Country: GB (occurrence: GB)
  Receive Date: 20130829
  Receipt Date: 20130829
  Transmission Date: 20140515
  Serious: Yes (Other)
  Sender: FDA-Public Use
  Company Number: GB-WATSON-2013-15130

PATIENT
  Age: 74 Year
  Sex: Male

DRUGS (2)
  1. TRIMETHOPRIM (UNKNOWN) [Suspect]
     Indication: URINARY TRACT INFECTION
     Dosage: 200 MG, BID
     Route: 065
     Dates: start: 20070301, end: 20070303
  2. METHOTREXATE (UNKNOWN) [Suspect]
     Indication: RHEUMATOID ARTHRITIS
     Dosage: UNK, UNKNOWN
     Route: 048

REACTIONS (4)
  - Urinary tract infection [Recovered/Resolved]
  - Medication error [Recovered/Resolved]
  - Drug interaction [Unknown]
  - Drug level increased [Unknown]
